FAERS Safety Report 12492818 (Version 1)
Quarter: 2016Q2

REPORT INFORMATION
  Report Type: Spontaneous
  Country: US (occurrence: US)
  Receive Date: 20160623
  Receipt Date: 20160623
  Transmission Date: 20160815
  Serious: Yes (Hospitalization)
  Sender: FDA-Public Use
  Company Number: US-SA-2016SA115944

PATIENT
  Age: 68 Year
  Sex: Male

DRUGS (9)
  1. HYDROCORTISONE-NEOMYCIN-POLYMYXIN B [Concomitant]
     Active Substance: HYDROCORTISONE\NEOMYCIN\POLYMYXIN B
     Route: 001
  2. SERTRALINE [Concomitant]
     Active Substance: SERTRALINE HYDROCHLORIDE
     Dosage: STRENGTH: 50 MG
  3. CEPHALEXIN. [Concomitant]
     Active Substance: CEPHALEXIN
     Dosage: STRENGTH: 500 MG
  4. ZETIA [Concomitant]
     Active Substance: EZETIMIBE
     Dosage: STRENGTH: 10 MG
  5. PRALUENT [Suspect]
     Active Substance: ALIROCUMAB
     Route: 058
     Dates: start: 20160105
  6. ALIROCUMAB PREFILLED PEN [Concomitant]
     Active Substance: ALIROCUMAB
     Dates: start: 20160105
  7. TOBRADEX [Concomitant]
     Active Substance: DEXAMETHASONE\TOBRAMYCIN
     Dosage: SUSPENSION?STRENGTH: 0.3-0.05
  8. TRANDOLAPRIL. [Concomitant]
     Active Substance: TRANDOLAPRIL
     Dosage: STRENGTH: 4 MG
  9. OMEPRAZOLE. [Concomitant]
     Active Substance: OMEPRAZOLE
     Dosage: STRENGTH: 40 MG

REACTIONS (1)
  - Nephrolithiasis [Recovered/Resolved]

NARRATIVE: CASE EVENT DATE: 20160606
